FAERS Safety Report 11792753 (Version 1)
Quarter: 2015Q4

REPORT INFORMATION
  Report Type: Spontaneous
  Country: IT (occurrence: None)
  Receive Date: 20151130
  Receipt Date: 20151130
  Transmission Date: 20160305
  Serious: No
  Sender: FDA-Public Use
  Company Number: 2015RR-106432

PATIENT
  Age: 58 Year
  Sex: Male
  Weight: 83 kg

DRUGS (3)
  1. FLUOROURACIL (FLUOROURACIL) [Concomitant]
     Active Substance: FLUOROURACIL
  2. AVASTIN [Concomitant]
     Active Substance: BEVACIZUMAB
  3. OXALIPLATINO SUN 5 MG/ML, CONCENTRATO PER SOLUZIONE PER INFUSIONE (OXALIPLATIN) CONCENTRATE FOR SOLUTION FOR INFUSION, 5 MG/ML ; [Suspect]
     Active Substance: OXALIPLATIN
     Indication: ADENOCARCINOMA OF COLON
     Dosage: 136 MG CYCLICAL ?INTRAVENOUS
     Route: 042
     Dates: start: 20151008, end: 20151105

REACTIONS (3)
  - Lip oedema [None]
  - Flushing [None]
  - Roseola [None]

NARRATIVE: CASE EVENT DATE: 20151105
